FAERS Safety Report 17457873 (Version 2)
Quarter: 2020Q2

REPORT INFORMATION
  Report Type: Spontaneous
  Country: US (occurrence: US)
  Receive Date: 20200225
  Receipt Date: 20200407
  Transmission Date: 20200713
  Serious: Yes (Other)
  Sender: FDA-Public Use
  Company Number: US-ASTRAZENECA-2020SE25360

PATIENT
  Age: 695 Month
  Sex: Male
  Weight: 103.4 kg

DRUGS (10)
  1. LOSARTAN. [Concomitant]
     Active Substance: LOSARTAN
     Dosage: 100, 25 MG DAILY
  2. METOPROLOL. [Concomitant]
     Active Substance: METOPROLOL
  3. BYDUREON BCISE [Suspect]
     Active Substance: EXENATIDE
     Indication: DIABETES MELLITUS
     Route: 065
     Dates: start: 2019
  4. TRESIVA [Concomitant]
     Indication: DIABETES MELLITUS
     Dosage: 12.0IU UNKNOWN
  5. METFORMIN [Concomitant]
     Active Substance: METFORMIN HYDROCHLORIDE
     Indication: DIABETES MELLITUS
  6. NOVOLOG [Concomitant]
     Active Substance: INSULIN ASPART
     Indication: DIABETES MELLITUS
  7. DIGOXIN. [Concomitant]
     Active Substance: DIGOXIN
  8. ELAQUIS [Concomitant]
  9. AMLODIPINE [Concomitant]
     Active Substance: AMLODIPINE BESYLATE
  10. ATORVASTATIN [Concomitant]
     Active Substance: ATORVASTATIN

REACTIONS (6)
  - Incorrect dose administered by device [Unknown]
  - Localised infection [Unknown]
  - Drug delivery system malfunction [Unknown]
  - Device leakage [Unknown]
  - Device malfunction [Unknown]
  - Intentional product misuse [Not Recovered/Not Resolved]

NARRATIVE: CASE EVENT DATE: 201907
